FAERS Safety Report 10075881 (Version 3)
Quarter: 2014Q3

REPORT INFORMATION
  Report Type: Spontaneous
  Country: US (occurrence: US)
  Receive Date: 20140414
  Receipt Date: 20140825
  Transmission Date: 20150326
  Serious: Yes (Disabling)
  Sender: FDA-Public Use
  Company Number: US-PERRIGO-14US002954

PATIENT
  Age: 55 Year
  Sex: Male
  Weight: 88.44 kg

DRUGS (3)
  1. FLONASE [Suspect]
     Active Substance: FLUTICASONE PROPIONATE
     Indication: SINUSITIS
     Dosage: UNK
     Route: 045
     Dates: start: 20140228, end: 20140319
  2. MOMETASONE FUROATE RX  0.1% 5D8 [Suspect]
     Active Substance: MOMETASONE FUROATE
     Indication: SINUSITIS
     Dosage: TWO SPRAYS IN EACH NOSTRIL, A COUPLE OF TIMES TOTAL
     Route: 045
     Dates: start: 20140228, end: 20140319
  3. SALINE [Concomitant]
     Active Substance: SODIUM CHLORIDE
     Indication: SINUSITIS
     Dosage: UNKNOWN, PRN
     Route: 045
     Dates: start: 20140228, end: 20140319

REACTIONS (14)
  - Anosmia [Not Recovered/Not Resolved]
  - Ageusia [Not Recovered/Not Resolved]
  - Throat irritation [Not Recovered/Not Resolved]
  - Dry throat [Not Recovered/Not Resolved]
  - Incorrect route of drug administration [Recovered/Resolved]
  - Application site burn [Not Recovered/Not Resolved]
  - Haemoptysis [Not Recovered/Not Resolved]
  - Insomnia [Not Recovered/Not Resolved]
  - Application site discharge [Not Recovered/Not Resolved]
  - Thirst [Not Recovered/Not Resolved]
  - Application site pain [Not Recovered/Not Resolved]
  - Epistaxis [Not Recovered/Not Resolved]
  - Dyspnoea [Not Recovered/Not Resolved]
  - Bronchiolitis [Not Recovered/Not Resolved]

NARRATIVE: CASE EVENT DATE: 20140228
